FAERS Safety Report 8075550-X (Version None)
Quarter: 2012Q1

REPORT INFORMATION
  Report Type: 
  Country: None (occurrence: None)
  Receive Date: 20120127
  Receipt Date: 20120118
  Transmission Date: 20120608
  Serious: Yes (Life-Threatening, Hospitalization)
  Sender: FDA-Public Use
  Company Number: GB-BRISTOL-MYERS SQUIBB COMPANY-16357683

PATIENT
  Age: 20 Year
  Sex: Female
  Weight: 60 kg

DRUGS (4)
  1. MIRTAZAPINE [Suspect]
  2. ARIPIPRAZOLE [Suspect]
     Indication: SCHIZOAFFECTIVE DISORDER
     Route: 048
     Dates: start: 20111215, end: 20111218
  3. DULOXETINE HYDROCHLORIDE [Suspect]
  4. QUETIAPINE [Suspect]

REACTIONS (4)
  - CONVULSION [None]
  - DYSTONIA [None]
  - COMA SCALE ABNORMAL [None]
  - CONVULSIVE THRESHOLD LOWERED [None]
